FAERS Safety Report 13167575 (Version 4)
Quarter: 2017Q2

REPORT INFORMATION
  Report Type: Report from Study
  Country: US (occurrence: US)
  Receive Date: 20170131
  Receipt Date: 20170508
  Transmission Date: 20170830
  Serious: Yes (Other)
  Sender: FDA-Public Use
  Company Number: US-BAYER-2017-004358

PATIENT
  Age: 64 Year
  Sex: Female

DRUGS (4)
  1. ADEMPAS [Suspect]
     Active Substance: RIOCIGUAT
     Indication: PULMONARY ARTERIAL HYPERTENSION
     Dosage: 1 MG, TID
     Route: 048
     Dates: start: 20161101
  2. ADEMPAS [Suspect]
     Active Substance: RIOCIGUAT
     Indication: PULMONARY ARTERIAL HYPERTENSION
     Dosage: 1 MG, TID
     Route: 048
     Dates: start: 20170130
  3. ADEMPAS [Suspect]
     Active Substance: RIOCIGUAT
     Indication: PULMONARY ARTERIAL HYPERTENSION
     Dosage: UNK
     Route: 048
  4. ADEMPAS [Suspect]
     Active Substance: RIOCIGUAT
     Indication: PULMONARY ARTERIAL HYPERTENSION
     Dosage: 1.5 MG, UNK
     Route: 048
     Dates: start: 20170119

REACTIONS (13)
  - Constipation [Recovering/Resolving]
  - Pyrexia [Recovering/Resolving]
  - Dyspepsia [Recovering/Resolving]
  - Loss of personal independence in daily activities [Recovering/Resolving]
  - Hypotension [Not Recovered/Not Resolved]
  - Dizziness exertional [Recovering/Resolving]
  - Nausea [Recovering/Resolving]
  - Influenza [Recovering/Resolving]
  - Vomiting [Recovering/Resolving]
  - Chest discomfort [None]
  - Hypotension [Not Recovered/Not Resolved]
  - Presyncope [None]
  - Fatigue [Recovering/Resolving]

NARRATIVE: CASE EVENT DATE: 20170123
